FAERS Safety Report 6914121-2 (Version None)
Quarter: 2010Q3

REPORT INFORMATION
  Report Type: 
  Country: None (occurrence: None)
  Receive Date: 20100806
  Receipt Date: 20100806
  Transmission Date: 20110219
  Serious: Yes (Other)
  Sender: FDA-Public Use
  Company Number: None

PATIENT
  Sex: Male
  Weight: 25.855 kg

DRUGS (1)
  1. SINGULAIR [Suspect]
     Indication: ASTHMA
     Dosage: 5MG QHS PO
     Route: 048
     Dates: start: 20080901, end: 20100701

REACTIONS (4)
  - CRYING [None]
  - HALLUCINATION [None]
  - MORBID THOUGHTS [None]
  - NIGHTMARE [None]
